FAERS Safety Report 9503116 (Version 1)
Quarter: 2013Q3

REPORT INFORMATION
  Report Type: Spontaneous
  Country: NL (occurrence: NL)
  Receive Date: 20130906
  Receipt Date: 20130906
  Transmission Date: 20140515
  Serious: Yes (Other)
  Sender: FDA-Public Use
  Company Number: NL-PFIZER INC-2013255081

PATIENT
  Age: 48 Year
  Sex: Female
  Weight: 61 kg

DRUGS (2)
  1. ETHINYLESTRADIOL/LEVONORGESTREL [Suspect]
     Indication: CONTRACEPTION
     Dosage: (150/ 30UG), UNK
     Dates: start: 20130812, end: 20130817
  2. ARTELAC [Concomitant]
     Dosage: 3.2MG/ML 3X DAILY, AS NEEDED
     Dates: start: 201105

REACTIONS (1)
  - Amaurosis fugax [Recovered/Resolved]
